FAERS Safety Report 23909065 (Version 1)
Quarter: 2024Q2

REPORT INFORMATION
  Report Type: Spontaneous
  Country: US (occurrence: US)
  Receive Date: 20240528
  Receipt Date: 20240528
  Transmission Date: 20240716
  Serious: Yes (Other)
  Sender: FDA-Public Use
  Company Number: US-BOIRON-202400139

PATIENT
  Sex: Female

DRUGS (3)
  1. GELSEMIUM SEMPERVIRENS ROOT [Suspect]
     Active Substance: GELSEMIUM SEMPERVIRENS ROOT
     Indication: Multiple allergies
     Dosage: UNK
     Dates: start: 2024
  2. GELSEMIUM SEMPERVIRENS ROOT [Suspect]
     Active Substance: GELSEMIUM SEMPERVIRENS ROOT
     Indication: Vision blurred
  3. GELSEMIUM SEMPERVIRENS ROOT [Suspect]
     Active Substance: GELSEMIUM SEMPERVIRENS ROOT
     Indication: Eye discharge

REACTIONS (2)
  - Paralysis [Unknown]
  - Muscular weakness [Unknown]

NARRATIVE: CASE EVENT DATE: 20240101
